FAERS Safety Report 8063050-2 (Version None)
Quarter: 2012Q1

REPORT INFORMATION
  Report Type: 
  Country: None (occurrence: None)
  Receive Date: 20120123
  Receipt Date: 20120116
  Transmission Date: 20120608
  Serious: Yes (Other)
  Sender: FDA-Public Use
  Company Number: DE-ROCHE-1031260

PATIENT
  Sex: Male

DRUGS (3)
  1. VICTRELIS [Concomitant]
     Dates: start: 20110929
  2. COPEGUS [Suspect]
     Indication: HEPATITIS C
     Dosage: 1-0-2 PER DAY
     Dates: start: 20110901
  3. PEGASYS [Suspect]
     Indication: HEPATITIS C
     Dates: start: 20110901

REACTIONS (3)
  - RASH [None]
  - DERMATITIS EXFOLIATIVE [None]
  - OEDEMA PERIPHERAL [None]
